FAERS Safety Report 17551358 (Version 1)
Quarter: 2020Q1

REPORT INFORMATION
  Report Type: Spontaneous
  Country: US (occurrence: US)
  Receive Date: 20200317
  Receipt Date: 20200317
  Transmission Date: 20200409
  Serious: No
  Sender: FDA-Public Use
  Company Number: US-UPSHER-SMITH LABORATORIES, LLC-2019USL00372

PATIENT
  Sex: Female

DRUGS (8)
  1. PREVALITE [Suspect]
     Active Substance: CHOLESTYRAMINE
     Indication: CONSTIPATION
  2. DIAZEPAM. [Concomitant]
     Active Substance: DIAZEPAM
  3. IBUPROFEN. [Concomitant]
     Active Substance: IBUPROFEN
  4. PAROXETINE. [Concomitant]
     Active Substance: PAROXETINE
  5. VITAMINS [Concomitant]
     Active Substance: VITAMINS
  6. PREVALITE [Suspect]
     Active Substance: CHOLESTYRAMINE
     Indication: DIARRHOEA
     Dosage: 4 G, 2X/DAY
     Route: 048
     Dates: start: 2019
  7. LISINOPRIL. [Concomitant]
     Active Substance: LISINOPRIL
  8. SYNTHROID [Concomitant]
     Active Substance: LEVOTHYROXINE SODIUM

REACTIONS (8)
  - Urinary incontinence [Recovered/Resolved]
  - Flatulence [Not Recovered/Not Resolved]
  - Abnormal faeces [Unknown]
  - Hypertension [Unknown]
  - Urine odour abnormal [Not Recovered/Not Resolved]
  - Blood urine present [Not Recovered/Not Resolved]
  - Drug ineffective for unapproved indication [Not Recovered/Not Resolved]
  - Eructation [Not Recovered/Not Resolved]

NARRATIVE: CASE EVENT DATE: 2019
